FAERS Safety Report 13972997 (Version 1)
Quarter: 2017Q3

REPORT INFORMATION
  Report Type: Spontaneous
  Country: US (occurrence: None)
  Receive Date: 20170914
  Receipt Date: 20170914
  Transmission Date: 20171128
  Serious: Yes (Death)
  Sender: FDA-Public Use
  Company Number: None

PATIENT
  Age: 78 Year

DRUGS (1)
  1. STIVARGA [Suspect]
     Active Substance: REGORAFENIB
     Indication: HEPATOCELLULAR CARCINOMA
     Dosage: 40MG 3TABS DAILY ORAL
     Route: 048
     Dates: start: 20170331, end: 20170728

REACTIONS (1)
  - Death [None]

NARRATIVE: CASE EVENT DATE: 20170914
